FAERS Safety Report 22540986 (Version 5)
Quarter: 2023Q4

REPORT INFORMATION
  Report Type: Spontaneous
  Country: JP (occurrence: JP)
  Receive Date: 20230609
  Receipt Date: 20231206
  Transmission Date: 20240110
  Serious: Yes (Hospitalization, Other)
  Sender: FDA-Public Use
  Company Number: JP-ONO-2023JP010420

PATIENT
  Age: 70 Year
  Sex: Female

DRUGS (17)
  1. BRAFTOVI [Suspect]
     Active Substance: ENCORAFENIB
     Indication: Colon cancer
     Dosage: 300 MG
     Route: 048
     Dates: start: 20230419
  2. BRAFTOVI [Suspect]
     Active Substance: ENCORAFENIB
     Dosage: 225 MG
     Route: 048
     Dates: start: 20230428, end: 20230512
  3. BRAFTOVI [Suspect]
     Active Substance: ENCORAFENIB
     Dosage: 225 MG
     Route: 048
     Dates: start: 20230524
  4. BRAFTOVI [Suspect]
     Active Substance: ENCORAFENIB
     Dosage: 225 MG
     Route: 048
     Dates: start: 20230607
  5. BRAFTOVI [Suspect]
     Active Substance: ENCORAFENIB
     Dosage: 225 MG
     Route: 048
     Dates: start: 20230809
  6. BRAFTOVI [Suspect]
     Active Substance: ENCORAFENIB
     Dosage: 225 MG
     Route: 048
     Dates: start: 20231011
  7. CETUXIMAB [Suspect]
     Active Substance: CETUXIMAB
     Indication: Colon cancer
     Dosage: UNK
     Route: 065
     Dates: start: 20230418, end: 20230418
  8. CETUXIMAB [Suspect]
     Active Substance: CETUXIMAB
     Dosage: UNK
     Route: 065
     Dates: start: 20230425, end: 20230509
  9. CETUXIMAB [Suspect]
     Active Substance: CETUXIMAB
     Dosage: UNK
     Route: 065
     Dates: start: 20230524, end: 20230524
  10. CETUXIMAB [Suspect]
     Active Substance: CETUXIMAB
     Dosage: UNK
     Route: 065
     Dates: start: 20230607, end: 20230712
  11. CETUXIMAB [Suspect]
     Active Substance: CETUXIMAB
     Dosage: UNK
     Route: 065
     Dates: start: 20230809, end: 20230920
  12. CETUXIMAB [Suspect]
     Active Substance: CETUXIMAB
     Dosage: UNK
     Route: 065
     Dates: start: 20231011
  13. OXYCONTIN [Concomitant]
     Active Substance: OXYCODONE HYDROCHLORIDE
     Dosage: UNK
     Route: 065
  14. OXYCONTIN [Concomitant]
     Active Substance: OXYCODONE HYDROCHLORIDE
     Dosage: 30 MG
     Route: 065
     Dates: start: 20230809
  15. OXYCONTIN [Concomitant]
     Active Substance: OXYCODONE HYDROCHLORIDE
     Dosage: 50 MG, Q12H
     Route: 065
     Dates: start: 20231002
  16. AMLODIPINE [Concomitant]
     Active Substance: AMLODIPINE BESYLATE
     Dosage: UNK
     Route: 065
  17. AMLODIPINE [Concomitant]
     Active Substance: AMLODIPINE BESYLATE
     Dosage: 5 MG, EVERYDAY
     Route: 065
     Dates: start: 20231002

REACTIONS (6)
  - Pyrexia [Unknown]
  - Biliary obstruction [Recovered/Resolved]
  - Liver abscess [Unknown]
  - Cholangitis [Unknown]
  - Pyrexia [Recovered/Resolved]
  - Infusion related reaction [Recovered/Resolved]

NARRATIVE: CASE EVENT DATE: 20230418
